FAERS Safety Report 5535708-8 (Version None)
Quarter: 2007Q4

REPORT INFORMATION
  Report Type: 
  Country: None (occurrence: None)
  Receive Date: 20071204
  Receipt Date: 20071204
  Transmission Date: 20080405
  Serious: No
  Sender: FDA-Public Use
  Company Number: None

PATIENT
  Age: 48 Year
  Sex: Female
  Weight: 57.6068 kg

DRUGS (1)
  1. ZOVIRAX [Suspect]
     Indication: ORAL HERPES
     Dosage: EVERY 2 HOURS TOP
     Route: 061
     Dates: start: 20071130, end: 20071203

REACTIONS (4)
  - APPLICATION SITE REACTION [None]
  - CONDITION AGGRAVATED [None]
  - INFECTION [None]
  - SKIN DISORDER [None]
